FAERS Safety Report 23688099 (Version 1)
Quarter: 2024Q1

REPORT INFORMATION
  Report Type: Spontaneous
  Country: US (occurrence: US)
  Receive Date: 20240329
  Receipt Date: 20240329
  Transmission Date: 20240410
  Serious: Yes (Life-Threatening, Hospitalization, Other)
  Sender: FDA-Public Use
  Company Number: US-STRIDES ARCOLAB LIMITED-2024SP003527

PATIENT
  Sex: Female

DRUGS (2)
  1. PROPRANOLOL [Suspect]
     Active Substance: PROPRANOLOL HYDROCHLORIDE
     Indication: Product used for unknown indication
     Dosage: UNK (MOTHER DOSE: 20 MG/DAY)
     Route: 064
  2. METHIMAZOLE [Suspect]
     Active Substance: METHIMAZOLE
     Indication: Product used for unknown indication
     Dosage: UNKNOWN (MOTHER RECEIVED DOSE:30 MG/DAY)
     Route: 064

REACTIONS (8)
  - Premature baby [Unknown]
  - Tachycardia foetal [Unknown]
  - Oligohydramnios [Unknown]
  - Small for dates baby [Unknown]
  - Hypoglycaemia [Recovered/Resolved]
  - Graves^ disease [Unknown]
  - Foetal growth restriction [Unknown]
  - Foetal exposure during pregnancy [Unknown]
